APPROVED DRUG PRODUCT: ACETAMINOPHEN
Active Ingredient: ACETAMINOPHEN
Strength: 1GM/100ML (10MG/ML)
Dosage Form/Route: SOLUTION;INTRAVENOUS
Application: N204767 | Product #001
Applicant: FRESENIUS KABI USA LLC
Approved: Oct 28, 2015 | RLD: No | RS: No | Type: RX

PATENTS:
Patent 8741959 | Expires: Apr 19, 2030